FAERS Safety Report 4560548-6 (Version None)
Quarter: 2005Q1

REPORT INFORMATION
  Report Type: 
  Country: None (occurrence: None)
  Receive Date: 20050125
  Receipt Date: 20050118
  Transmission Date: 20050727
  Serious: Yes (Other)
  Sender: FDA-Public Use
  Company Number: GB-GLAXOSMITHKLINE-B0364898A

PATIENT
  Age: 58 Year
  Sex: Female
  Weight: 75 kg

DRUGS (5)
  1. AVANDIA [Suspect]
     Dosage: 4MG PER DAY
     Route: 048
     Dates: start: 20040114, end: 20050106
  2. SIMVASTATIN [Concomitant]
     Indication: LIPIDS
     Dosage: 20MG PER DAY
     Route: 048
     Dates: start: 20021121, end: 20041220
  3. METFORMIN HCL [Concomitant]
     Dosage: 500MG PER DAY
     Route: 048
     Dates: start: 20021107
  4. OMEPRAZOLE [Concomitant]
     Dosage: 20MG PER DAY
     Route: 048
     Dates: start: 20010627, end: 20050106
  5. MEBEVERINE [Concomitant]
     Indication: IRRITABLE BOWEL SYNDROME
     Dosage: 135MG PER DAY
     Route: 048
     Dates: start: 20000823

REACTIONS (6)
  - FACE OEDEMA [None]
  - HYPERHIDROSIS [None]
  - PAIN [None]
  - PAROTID GLAND ENLARGEMENT [None]
  - SIALOADENITIS [None]
  - SUBMANDIBULAR MASS [None]
